FAERS Safety Report 6306713-9 (Version None)
Quarter: 2009Q3

REPORT INFORMATION
  Report Type: 
  Country: None (occurrence: None)
  Receive Date: 20090812
  Receipt Date: 20090706
  Transmission Date: 20100115
  Serious: No
  Sender: FDA-Public Use
  Company Number: A0785881A

PATIENT
  Age: 67 Year
  Sex: Female

DRUGS (3)
  1. VERAMYST [Suspect]
     Indication: DRUG USE FOR UNKNOWN INDICATION
     Dosage: 2SPR PER DAY
     Route: 045
     Dates: start: 20090522, end: 20090522
  2. FOSAMAX [Concomitant]
  3. VITAMIN D [Concomitant]

REACTIONS (5)
  - ABNORMAL SENSATION IN EYE [None]
  - COUGH [None]
  - DRY EYE [None]
  - EYELID OEDEMA [None]
  - TENSION HEADACHE [None]
